FAERS Safety Report 18079853 (Version 1)
Quarter: 2020Q3

REPORT INFORMATION
  Report Type: Spontaneous
  Country: AR (occurrence: AR)
  Receive Date: 20200728
  Receipt Date: 20200728
  Transmission Date: 20201103
  Serious: Yes (Other)
  Sender: FDA-Public Use
  Company Number: AR-PFIZER INC-2020283600

PATIENT
  Age: 49 Year
  Sex: Male

DRUGS (2)
  1. SUTENT [Suspect]
     Active Substance: SUNITINIB MALATE
     Indication: METASTATIC RENAL CELL CARCINOMA
     Dosage: UNK, DAILY
     Dates: start: 20181210, end: 2020
  2. SUTENT [Suspect]
     Active Substance: SUNITINIB MALATE
     Dosage: UNK
     Dates: start: 2020

REACTIONS (1)
  - Gastrointestinal disorder [Recovered/Resolved]

NARRATIVE: CASE EVENT DATE: 2020
